FAERS Safety Report 11142391 (Version 14)
Quarter: 2018Q4

REPORT INFORMATION
  Report Type: Report from Study
  Country: US (occurrence: US)
  Receive Date: 20150527
  Receipt Date: 20181123
  Transmission Date: 20190204
  Serious: Yes (Hospitalization, Other)
  Sender: FDA-Public Use
  Company Number: PHHY2015US059279

PATIENT
  Age: 38 Year
  Sex: Female
  Weight: 62.14 kg

DRUGS (14)
  1. NAPROSYN [Concomitant]
     Active Substance: NAPROXEN
     Indication: PRODUCT USED FOR UNKNOWN INDICATION
     Dosage: 1 DF, BID (WITH MEALS)
     Route: 048
  2. ALBUTEROL. [Concomitant]
     Active Substance: ALBUTEROL
     Indication: WHEEZING
     Dosage: 2 PUFFS EVERY 4 HRS (PRN)
     Route: 055
  3. VITAMIN B12 [Concomitant]
     Active Substance: CYANOCOBALAMIN
     Indication: PRODUCT USED FOR UNKNOWN INDICATION
     Dosage: UNK, QD
     Route: 060
  4. DELTASONE [Concomitant]
     Active Substance: PREDNISONE
     Indication: PRODUCT USED FOR UNKNOWN INDICATION
     Dosage: UNK
     Route: 065
  5. NUVIGIL [Concomitant]
     Active Substance: ARMODAFINIL
     Indication: FATIGUE
     Dosage: UNK, EVERY MORNING
     Route: 048
  6. MEDI-MECLIZINE [Concomitant]
     Indication: PRODUCT USED FOR UNKNOWN INDICATION
     Dosage: 1 DF, BID (PRN)
     Route: 048
  7. CALCIUM 600 + D [Concomitant]
     Active Substance: CALCIUM\VITAMIN D
     Indication: PRODUCT USED FOR UNKNOWN INDICATION
     Dosage: UNK, QD
     Route: 048
  8. RANITIDINE HCL [Concomitant]
     Active Substance: RANITIDINE HYDROCHLORIDE
     Indication: PRODUCT USED FOR UNKNOWN INDICATION
     Dosage: 2 DF, QD
     Route: 048
  9. ADVIL [Concomitant]
     Active Substance: IBUPROFEN
     Indication: PRODUCT USED FOR UNKNOWN INDICATION
     Dosage: UNK
     Route: 048
  10. GILENYA [Suspect]
     Active Substance: FINGOLIMOD HYDROCHLORIDE
     Indication: MULTIPLE SCLEROSIS
     Dosage: 0.5 MG, QD
     Route: 048
     Dates: start: 20150511, end: 20150512
  11. ELAVIL [Concomitant]
     Active Substance: AMITRIPTYLINE HYDROCHLORIDE
     Indication: PRODUCT USED FOR UNKNOWN INDICATION
     Dosage: 2 DF, QHS (BED TIME)
     Route: 048
  12. FLONASE [Concomitant]
     Active Substance: FLUTICASONE PROPIONATE
     Indication: PRODUCT USED FOR UNKNOWN INDICATION
     Dosage: 1-2 SPRAYS, QD
     Route: 045
  13. LITHIUM CARBONATE. [Concomitant]
     Active Substance: LITHIUM CARBONATE
     Indication: PRODUCT USED FOR UNKNOWN INDICATION
     Dosage: 2 DF, QD
     Route: 048
  14. VITAMIN D3 [Concomitant]
     Active Substance: CHOLECALCIFEROL
     Indication: PRODUCT USED FOR UNKNOWN INDICATION
     Dosage: UNK, QD
     Route: 048

REACTIONS (40)
  - Panic attack [Recovered/Resolved]
  - Supraventricular extrasystoles [Unknown]
  - Gait inability [Unknown]
  - Muscular weakness [Unknown]
  - Depressed mood [Unknown]
  - Hemiparesis [Unknown]
  - Immunoglobulins increased [Unknown]
  - Chest discomfort [Unknown]
  - Sinus bradycardia [Unknown]
  - Concussion [Recovered/Resolved]
  - Idiosyncratic drug reaction [Recovered/Resolved]
  - Gait disturbance [Unknown]
  - Hoffmann^s sign [Unknown]
  - Sensory loss [Unknown]
  - Nausea [Unknown]
  - Hypoaesthesia [Unknown]
  - Disturbance in attention [Unknown]
  - Tinnitus [Unknown]
  - Neutrophil count increased [Unknown]
  - Multiple sclerosis relapse [Recovered/Resolved]
  - Psychogenic seizure [Recovered/Resolved]
  - Balance disorder [Unknown]
  - Memory impairment [Unknown]
  - Fall [Not Recovered/Not Resolved]
  - Muscle twitching [Unknown]
  - Urinary retention [Unknown]
  - Cognitive disorder [Unknown]
  - Loss of consciousness [Unknown]
  - Blood glucose increased [Unknown]
  - Pain in extremity [Unknown]
  - Antipsychotic drug level below therapeutic [Unknown]
  - Anxiety [Recovered/Resolved]
  - Chest pain [Recovered/Resolved]
  - Fear [Unknown]
  - Monocyte count decreased [Unknown]
  - Dizziness [Unknown]
  - Lymphocyte count decreased [Unknown]
  - Dysstasia [Unknown]
  - Syncope [Unknown]
  - Vertigo [Unknown]

NARRATIVE: CASE EVENT DATE: 20150511
